FAERS Safety Report 23655787 (Version 1)
Quarter: 2024Q1

REPORT INFORMATION
  Report Type: Report from Study
  Country: EG (occurrence: EG)
  Receive Date: 20240321
  Receipt Date: 20240321
  Transmission Date: 20240410
  Serious: No
  Sender: FDA-Public Use
  Company Number: EG-SANDOZ-SDZ2024EG029830

PATIENT
  Age: 10 Year
  Sex: Male
  Weight: 37 kg

DRUGS (1)
  1. OMNITROPE [Suspect]
     Active Substance: SOMATROPIN
     Indication: Product used for unknown indication
     Dosage: 0.9 MG, QD
     Route: 058
     Dates: start: 20220518

REACTIONS (4)
  - Off label use [Unknown]
  - Product storage error [Unknown]
  - Needle issue [Unknown]
  - Multiple use of single-use product [Unknown]

NARRATIVE: CASE EVENT DATE: 20220518
